FAERS Safety Report 20611529 (Version 1)
Quarter: 2022Q1

REPORT INFORMATION
  Report Type: Spontaneous
  Country: US (occurrence: None)
  Receive Date: 20220318
  Receipt Date: 20220318
  Transmission Date: 20220423
  Serious: No
  Sender: FDA-Public Use
  Company Number: None

PATIENT
  Sex: Male

DRUGS (1)
  1. INFLECTRA [Suspect]
     Active Substance: INFLIXIMAB-DYYB
     Indication: Rheumatoid arthritis
     Dosage: OTHER FREQUENCY : EVERY 5 WEEKS;?OTHER ROUTE : IV INFUSION;?
     Route: 050
     Dates: start: 20220113, end: 20220118

REACTIONS (1)
  - Drug ineffective [None]
